FAERS Safety Report 5492689-3 (Version None)
Quarter: 2007Q4

REPORT INFORMATION
  Report Type: 
  Country: None (occurrence: None)
  Receive Date: 20071017
  Receipt Date: 20071003
  Transmission Date: 20080405
  Serious: Yes (Other)
  Sender: FDA-Public Use
  Company Number: 2007330464

PATIENT
  Sex: Male

DRUGS (1)
  1. PURELL ORIGINAL (ETHYL ALCOHOL) [Suspect]
     Dosage: OPTHALMIC
     Route: 047
     Dates: start: 20070906, end: 20070906

REACTIONS (3)
  - ACCIDENTAL EXPOSURE [None]
  - EYE IRRITATION [None]
  - ROAD TRAFFIC ACCIDENT [None]
